FAERS Safety Report 4335839-4 (Version None)
Quarter: 2004Q2

REPORT INFORMATION
  Report Type: 
  Country: None (occurrence: None)
  Receive Date: 20040406
  Receipt Date: 20040324
  Transmission Date: 20050107
  Serious: Yes (Death, Other)
  Sender: FDA-Public Use
  Company Number: 2004020367

PATIENT
  Age: 46 Year
  Sex: Male

DRUGS (3)
  1. PHENYTOIN [Suspect]
     Indication: CONVULSION
     Dosage: 300 MG (QD), ORAL
     Route: 048
  2. DEXAMETHASONE [Suspect]
     Indication: ILL-DEFINED DISORDER
     Dosage: 16 MG (QID), ORAL
     Route: 048
  3. THERAPEUTIC RADIOPHARMACEUTICALS (THERAPEUTIC RADIOPHARMACEUTICALS) [Suspect]
     Indication: METASTASES TO CENTRAL NERVOUS SYSTEM
     Dosage: (3000 CGY OVER 10

REACTIONS (3)
  - ACUTE RESPIRATORY DISTRESS SYNDROME [None]
  - ERYTHEMA MULTIFORME [None]
  - SEPSIS [None]
